FAERS Safety Report 4508162-2 (Version None)
Quarter: 2004Q4

REPORT INFORMATION
  Report Type: 
  Country: None (occurrence: None)
  Receive Date: 20041123
  Receipt Date: 20031030
  Transmission Date: 20050328
  Serious: No
  Sender: FDA-Public Use
  Company Number: US-GLAXOSMITHKLINE-A0432253A

PATIENT
  Age: 63 Year
  Sex: Male

DRUGS (6)
  1. WELLBUTRIN [Suspect]
     Indication: DEPRESSION
     Dosage: 100MG PER DAY
     Route: 048
     Dates: start: 20021001, end: 20030901
  2. XANAX [Concomitant]
  3. CARDURA [Concomitant]
  4. VALIUM [Concomitant]
  5. CLONIDINE [Concomitant]
  6. AVANDIA [Concomitant]

REACTIONS (3)
  - DRUG INEFFECTIVE [None]
  - LETHARGY [None]
  - SOMNOLENCE [None]
